FAERS Safety Report 9190252 (Version 1)
Quarter: 2013Q1

REPORT INFORMATION
  Report Type: Spontaneous
  Country: GB (occurrence: GB)
  Receive Date: 20130326
  Receipt Date: 20130326
  Transmission Date: 20140127
  Serious: Yes (Life-Threatening)
  Sender: FDA-Public Use
  Company Number: GB-NOVOPROD-373495

PATIENT
  Age: 65 Year
  Sex: Male
  Weight: 92.98 kg

DRUGS (3)
  1. VAGIFEM [Suspect]
     Indication: LOSS OF LIBIDO
     Dosage: 25 MCG
     Route: 050
     Dates: start: 20130221, end: 20130304
  2. VAGIFEM [Suspect]
     Indication: VULVOVAGINAL DRYNESS
  3. METFORMIN [Concomitant]
     Indication: PRODUCT USED FOR UNKNOWN INDICATION

REACTIONS (2)
  - Atrial fibrillation [Not Recovered/Not Resolved]
  - Exposure via partner [Unknown]
